FAERS Safety Report 9365894 (Version 2)
Quarter: 2013Q3

REPORT INFORMATION
  Report Type: Report from Study
  Country: AU (occurrence: AU)
  Receive Date: 20130625
  Receipt Date: 20130708
  Transmission Date: 20140515
  Serious: Yes (Other)
  Sender: FDA-Public Use
  Company Number: PHHY2013AU064537

PATIENT
  Age: 70 Year
  Sex: Female

DRUGS (6)
  1. ACLASTA [Suspect]
     Dosage: 5 MG, UNK
     Route: 042
     Dates: start: 20090623
  2. ACLASTA [Suspect]
     Dosage: 5 MG, UNK
     Route: 042
     Dates: start: 20110705
  3. ACLASTA [Suspect]
     Dosage: 5 MG, UNK
     Route: 042
     Dates: start: 20120705
  4. MADOPAR [Concomitant]
     Indication: PARKINSON^S DISEASE
     Dosage: UNK UKN, QID
     Route: 048
     Dates: start: 20071122
  5. SIFROL [Concomitant]
     Indication: RESTLESS LEGS SYNDROME
     Dosage: UNK MANE
     Route: 048
     Dates: start: 20120601
  6. CELEBREX [Concomitant]
     Indication: ARTHRALGIA
     Dosage: UNK UKN, QD
     Route: 048
     Dates: start: 20111019

REACTIONS (2)
  - Rib fracture [Not Recovered/Not Resolved]
  - Fall [Not Recovered/Not Resolved]
